FAERS Safety Report 16514716 (Version 1)
Quarter: 2019Q3

REPORT INFORMATION
  Report Type: Report from Study
  Country: US (occurrence: US)
  Receive Date: 20190702
  Receipt Date: 20190702
  Transmission Date: 20191004
  Serious: Yes (Hospitalization, Other)
  Sender: FDA-Public Use
  Company Number: US-GILEAD-2019-0411953

PATIENT
  Age: 14 Year
  Sex: Female
  Weight: 31.2 kg

DRUGS (6)
  1. AMBRISENTAN [Suspect]
     Active Substance: AMBRISENTAN
     Indication: PULMONARY ARTERIAL HYPERTENSION
     Dosage: 5 MG, QD
     Route: 048
     Dates: start: 20190423, end: 20190516
  2. ZOLOFT [Concomitant]
     Active Substance: SERTRALINE HYDROCHLORIDE
  3. SILDENAFIL. [Concomitant]
     Active Substance: SILDENAFIL
  4. LASIX [Concomitant]
     Active Substance: FUROSEMIDE
  5. PREVACID [Concomitant]
     Active Substance: LANSOPRAZOLE
  6. ASA [Concomitant]
     Active Substance: ASPIRIN

REACTIONS (9)
  - Oedema peripheral [Recovered/Resolved]
  - Off label use [Recovered/Resolved]
  - Blood potassium increased [Recovered/Resolved]
  - Periorbital oedema [Recovered/Resolved]
  - Acute kidney injury [Recovered/Resolved]
  - Blood creatinine increased [Recovered/Resolved]
  - Swelling [Unknown]
  - Vomiting [Recovered/Resolved]
  - Blood urea increased [Recovered/Resolved]
